FAERS Safety Report 24935410 (Version 1)
Quarter: 2025Q1

REPORT INFORMATION
  Report Type: Spontaneous
  Country: JP (occurrence: JP)
  Receive Date: 20250206
  Receipt Date: 20250206
  Transmission Date: 20250408
  Serious: Yes (Other)
  Sender: BIOCODEX
  Company Number: JP-BIOCODEX2-2025000086

PATIENT
  Age: 21 Year
  Sex: Female

DRUGS (2)
  1. DIACOMIT [Suspect]
     Active Substance: STIRIPENTOL
     Indication: Severe myoclonic epilepsy of infancy
     Route: 065
  2. DIACOMIT [Suspect]
     Active Substance: STIRIPENTOL
     Indication: Severe myoclonic epilepsy of infancy
     Dosage: TITRATED TO 1000 MG/DAY OVER FOUR MONTHS
     Route: 065

REACTIONS (1)
  - Seizure [Recovered/Resolved]
